FAERS Safety Report 20612859 (Version 1)
Quarter: 2022Q1

REPORT INFORMATION
  Report Type: Spontaneous
  Country: US (occurrence: None)
  Receive Date: 20220317
  Receipt Date: 20220317
  Transmission Date: 20220423
  Serious: Yes (Death)
  Sender: FDA-Public Use
  Company Number: None

PATIENT
  Age: 79 Year

DRUGS (19)
  1. ABIRATERONE [Suspect]
     Active Substance: ABIRATERONE
  2. ALFUZOSIN [Concomitant]
     Active Substance: ALFUZOSIN
  3. ATENOLOL [Concomitant]
     Active Substance: ATENOLOL
  4. AVODART [Concomitant]
  5. CALCIUM [Concomitant]
  6. CASODEX [Concomitant]
  7. CHOLESTYRAMINE [Concomitant]
  8. CIALIS [Concomitant]
  9. CIPROFLOXACIN [Concomitant]
     Active Substance: CIPROFLOXACIN
  10. CLIMIPHENE [Concomitant]
  11. FLUOROURACIL [Concomitant]
     Active Substance: FLUOROURACIL
  12. GENTAMICIN [Concomitant]
     Active Substance: GENTAMICIN
  13. IRON [Concomitant]
     Active Substance: IRON
  14. LEUCOVORIN [Concomitant]
     Active Substance: LEUCOVORIN
  15. LISINOPRIL [Concomitant]
     Active Substance: LISINOPRIL
  16. POTASSIUM [Concomitant]
     Active Substance: POTASSIUM
  17. VITAMIN B12 [Concomitant]
     Active Substance: CYANOCOBALAMIN
  18. VITAMIN D3 [Concomitant]
     Active Substance: CHOLECALCIFEROL
  19. ZOSTAVAX [Concomitant]

REACTIONS (1)
  - Death [None]
